FAERS Safety Report 8967856 (Version 1)
Quarter: 2012Q4

REPORT INFORMATION
  Report Type: 
  Country: US (occurrence: US)
  Receive Date: 20121218
  Receipt Date: 20121218
  Transmission Date: 20130627
  Serious: No
  Sender: FDA-Public Use
  Company Number: US-MYLANLABS-2012S1010157

PATIENT
  Sex: Male
  Weight: 90.72 kg

DRUGS (1)
  1. ROCURONIUM BROMIDE [Suspect]
     Indication: SEDATION
     Route: 042
     Dates: start: 20120511, end: 20120511

REACTIONS (2)
  - Drug effect decreased [Recovered/Resolved]
  - Unwanted awareness during anaesthesia [Recovered/Resolved]
